FAERS Safety Report 7937280-1 (Version None)
Quarter: 2011Q4

REPORT INFORMATION
  Report Type: 
  Country: None (occurrence: None)
  Receive Date: 20111123
  Receipt Date: 20111114
  Transmission Date: 20120403
  Serious: Yes (Other)
  Sender: FDA-Public Use
  Company Number: US-BAYER-2011-042390

PATIENT
  Age: 33 Year
  Sex: Female
  Weight: 77.098 kg

DRUGS (16)
  1. TIZANIDINE HCL [Concomitant]
     Indication: MYALGIA
     Dosage: 6 MG, TID
     Dates: start: 19980101
  2. YASMIN [Suspect]
     Indication: PREMENSTRUAL SYNDROME
  3. YASMIN [Suspect]
     Indication: ACNE
     Dosage: UNK
     Dates: start: 20030101, end: 20080601
  4. YASMIN [Suspect]
     Indication: MENSTRUAL DISORDER
  5. DROSPIRENONE AND ETHINYL ESTRADIOL [Suspect]
     Indication: ACNE
     Dosage: UNK
     Dates: start: 20080701, end: 20100301
  6. TRICOR [Concomitant]
     Indication: CHOLESTEROSIS
     Dosage: 145 MG, UNK
     Dates: start: 20000401, end: 20090101
  7. DROSPIRENONE AND ETHINYL ESTRADIOL [Suspect]
     Indication: PREMENSTRUAL SYNDROME
  8. CITALOPRAM HYDROBROMIDE [Concomitant]
     Indication: HEADACHE
     Dosage: 60 MG, UNK
     Dates: start: 19970101
  9. DROSPIRENONE AND ETHINYL ESTRADIOL [Suspect]
  10. HYDROCODONE [Concomitant]
     Indication: HEADACHE
     Dosage: 500 MG, UNK
     Dates: start: 19950101, end: 20110201
  11. PROPRANOLOL [Concomitant]
     Indication: HEART RATE IRREGULAR
     Dosage: 40 MG, BID
     Dates: start: 20070201
  12. YASMIN [Suspect]
  13. METHADONE HYDROCHLORIDE [Concomitant]
     Dosage: UNK
     Dates: start: 19960101, end: 20110101
  14. DROSPIRENONE AND ETHINYL ESTRADIOL [Suspect]
     Indication: MENSTRUAL DISORDER
  15. LORTAB [Concomitant]
     Dosage: UNK
     Dates: start: 19960101, end: 20110101
  16. BENICAR HCT [Concomitant]
     Indication: HYPERTENSION
     Dosage: 10 MG, DAILY
     Dates: start: 20090601

REACTIONS (11)
  - ANXIETY [None]
  - PAIN [None]
  - VOMITING [None]
  - GASTRIC DISORDER [None]
  - INJURY [None]
  - GASTROOESOPHAGEAL REFLUX DISEASE [None]
  - GENERAL PHYSICAL HEALTH DETERIORATION [None]
  - ABDOMINAL PAIN [None]
  - CHOLECYSTITIS CHRONIC [None]
  - CHOLELITHIASIS [None]
  - EMOTIONAL DISTRESS [None]
